FAERS Safety Report 12639078 (Version 2)
Quarter: 2016Q3

REPORT INFORMATION
  Report Type: Spontaneous
  Country: US (occurrence: US)
  Receive Date: 20160809
  Receipt Date: 20160810
  Transmission Date: 20161109
  Serious: Yes (Life-Threatening, Hospitalization, Other)
  Sender: FDA-Public Use
  Company Number: US-JNJFOC-20160722842

PATIENT
  Age: 71 Year
  Sex: Female
  Weight: 61.8 kg

DRUGS (10)
  1. MOTRIN [Suspect]
     Active Substance: IBUPROFEN
     Indication: BACK PAIN
     Dosage: Q6H PRN
     Route: 048
     Dates: start: 201402, end: 20141202
  2. RIBOCICLIB [Suspect]
     Active Substance: RIBOCICLIB
     Indication: BREAST CANCER
     Route: 048
     Dates: start: 20140520, end: 20141202
  3. RIBOCICLIB [Suspect]
     Active Substance: RIBOCICLIB
     Indication: BREAST CANCER
     Route: 048
     Dates: start: 20140519
  4. PLACEBO [Suspect]
     Active Substance: UNSPECIFIED INGREDIENT
     Indication: BREAST CANCER
     Route: 048
     Dates: start: 20140519
  5. PLACEBO [Suspect]
     Active Substance: UNSPECIFIED INGREDIENT
     Indication: BREAST CANCER
     Route: 048
     Dates: start: 20141208
  6. PLACEBO [Suspect]
     Active Substance: UNSPECIFIED INGREDIENT
     Indication: BREAST CANCER
     Route: 048
     Dates: start: 20140520, end: 20141202
  7. LETROZOLE. [Suspect]
     Active Substance: LETROZOLE
     Indication: BREAST CANCER
     Route: 048
     Dates: start: 20140520, end: 20141202
  8. RIBOCICLIB [Suspect]
     Active Substance: RIBOCICLIB
     Indication: BREAST CANCER
     Route: 048
     Dates: start: 20141208
  9. LETROZOLE. [Suspect]
     Active Substance: LETROZOLE
     Indication: BREAST CANCER
     Route: 048
     Dates: start: 20141208
  10. MOTRIN [Suspect]
     Active Substance: IBUPROFEN
     Route: 048

REACTIONS (4)
  - Anaemia [Recovered/Resolved with Sequelae]
  - Pleural effusion [Recovered/Resolved]
  - Gastric antral vascular ectasia [Recovered/Resolved]
  - Pneumonia [Recovered/Resolved]

NARRATIVE: CASE EVENT DATE: 20141202
